FAERS Safety Report 8181199-0 (Version None)
Quarter: 2012Q1

REPORT INFORMATION
  Report Type: 
  Country: None (occurrence: None)
  Receive Date: 20120302
  Receipt Date: 20120223
  Transmission Date: 20120608
  Serious: Yes (Hospitalization)
  Sender: FDA-Public Use
  Company Number: JP-GLAXOSMITHKLINE-B0780627A

PATIENT
  Age: 13 Year
  Sex: Male
  Weight: 75 kg

DRUGS (4)
  1. RISPERIDONE [Concomitant]
  2. VALPROATE SODIUM [Concomitant]
     Indication: EPILEPSY
     Route: 065
  3. CLONAZEPAM [Concomitant]
     Indication: EPILEPSY
  4. LAMOTRIGINE [Suspect]
     Indication: PRODUCT USED FOR UNKNOWN INDICATION
     Route: 065

REACTIONS (3)
  - HYPONATRAEMIA [None]
  - INAPPROPRIATE ANTIDIURETIC HORMONE SECRETION [None]
  - CONVULSION [None]
